FAERS Safety Report 26193126 (Version 1)
Quarter: 2025Q4

REPORT INFORMATION
  Report Type: Report from Study
  Country: US (occurrence: US)
  Receive Date: 20251223
  Receipt Date: 20251223
  Transmission Date: 20260118
  Serious: Yes (Hospitalization)
  Sender: ABBVIE
  Company Number: US-ABBVIE-6602473

PATIENT
  Age: 78 Year
  Sex: Female

DRUGS (1)
  1. HUMIRA [Suspect]
     Active Substance: ADALIMUMAB
     Indication: Product used for unknown indication
     Route: 058

REACTIONS (4)
  - Fall [Unknown]
  - Drug ineffective [Unknown]
  - Fear of injection [Unknown]
  - Obstruction [Unknown]

NARRATIVE: CASE EVENT DATE: 20251220
